FAERS Safety Report 5716402-7 (Version None)
Quarter: 2008Q2

REPORT INFORMATION
  Report Type: 
  Country: None (occurrence: None)
  Receive Date: 20080422
  Receipt Date: 20080411
  Transmission Date: 20081010
  Serious: Yes (Other)
  Sender: FDA-Public Use
  Company Number: 2008AP000891

PATIENT
  Age: 49 Year
  Sex: Male

DRUGS (6)
  1. CAPTOPRIL [Suspect]
     Indication: HYPERTENSION
     Dosage: 150 MG;TAB;PO; QD
     Route: 048
  2. ATENOLOL [Concomitant]
  3. METFORMIN HCL [Concomitant]
  4. INDAPAMIDE [Concomitant]
  5. TICLOPIDINE HYDROCHLORIDE [Concomitant]
  6. LOVASTATIN [Concomitant]

REACTIONS (3)
  - ANGIOEDEMA [None]
  - BLOOD CREATININE INCREASED [None]
  - BLOOD PRESSURE ABNORMAL [None]
